FAERS Safety Report 5007960-9 (Version None)
Quarter: 2006Q2

REPORT INFORMATION
  Report Type: 
  Country: None (occurrence: None)
  Receive Date: 20060517
  Receipt Date: 20060505
  Transmission Date: 20061013
  Serious: Yes (Other)
  Sender: FDA-Public Use
  Company Number: 2006061698

PATIENT
  Age: 6 Year
  Sex: Male

DRUGS (1)
  1. ZITHROMAX [Suspect]
     Indication: BRONCHITIS
     Dosage: UNKNOWN (200 MG, UNKNOWN), ORAL
     Route: 048
     Dates: start: 20060502

REACTIONS (2)
  - DISSOCIATIVE DISORDER [None]
  - HALLUCINATION [None]
